FAERS Safety Report 7148959-6 (Version None)
Quarter: 2010Q4

REPORT INFORMATION
  Report Type: 
  Country: None (occurrence: None)
  Receive Date: 20101209
  Receipt Date: 20101201
  Transmission Date: 20110411
  Serious: Yes (Hospitalization)
  Sender: FDA-Public Use
  Company Number: B0688150A

PATIENT
  Age: 81 Year
  Sex: Female

DRUGS (5)
  1. DILATREND [Suspect]
  2. DIOVAN HCT [Suspect]
     Dates: start: 20100501, end: 20100510
  3. MIRTAZAPINE [Concomitant]
  4. PANTOZOL [Concomitant]
  5. SINTROM [Concomitant]

REACTIONS (4)
  - DEHYDRATION [None]
  - DRUG TOXICITY [None]
  - HYPOTENSION [None]
  - MEDICATION ERROR [None]
